FAERS Safety Report 17788666 (Version 2)
Quarter: 2020Q2

REPORT INFORMATION
  Report Type: Other
  Country: US (occurrence: US)
  Receive Date: 20200514
  Receipt Date: 20200625
  Transmission Date: 20200714
  Serious: Yes (Hospitalization, Other)
  Sender: FDA-Public Use
  Company Number: US-AMAG PHARMACEUTICALS, INC.-AMAG202001619

PATIENT
  Age: 24 Year
  Sex: Female
  Weight: 71.73 kg

DRUGS (1)
  1. MAKENA [Suspect]
     Active Substance: HYDROXYPROGESTERONE CAPROATE
     Indication: PRODUCT USED FOR UNKNOWN INDICATION
     Route: 058
     Dates: end: 20190314

REACTIONS (5)
  - Premature delivery [Recovered/Resolved]
  - Streptococcus test positive [Unknown]
  - Nodule [Unknown]
  - Product administration error [Unknown]
  - Pruritus [Unknown]

NARRATIVE: CASE EVENT DATE: 20190524
